FAERS Safety Report 21353883 (Version 1)
Quarter: 2022Q3

REPORT INFORMATION
  Report Type: Report from Study
  Country: CN (occurrence: CN)
  Receive Date: 20220920
  Receipt Date: 20220920
  Transmission Date: 20221026
  Serious: Yes (Other)
  Sender: FDA-Public Use
  Company Number: CN-Accord-277751

PATIENT
  Age: 27 Month

DRUGS (4)
  1. CISPLATIN [Suspect]
     Active Substance: CISPLATIN
     Indication: Hepatoblastoma
     Dosage: NUMBER OF CHEMOTHERAPY CYCLES/TUMOR: 24
  2. ETOPOSIDE [Suspect]
     Active Substance: ETOPOSIDE
     Indication: Hepatoblastoma
     Dosage: NUMBER OF CHEMOTHERAPY CYCLES/TUMOR: 24
  3. CYCLOPHOSPHAMIDE [Suspect]
     Active Substance: CYCLOPHOSPHAMIDE
     Indication: Hepatoblastoma
     Dosage: CUMULATIVE DOSE: 9.53 G/M2, NUMBER OF CHEMOTHERAPY CYCLES/TUMOR: 24
  4. IFOSFAMIDE [Suspect]
     Active Substance: IFOSFAMIDE
     Indication: Hepatoblastoma
     Dosage: ACCUMULATED DOSE: 14.23 G/M2, NUMBER OF CHEMOTHERAPY CYCLES/ TUMOR: 24

REACTIONS (1)
  - Myelodysplastic syndrome [Unknown]
